FAERS Safety Report 6075549-9 (Version None)
Quarter: 2009Q1

REPORT INFORMATION
  Report Type: 
  Country: None (occurrence: None)
  Receive Date: 20090210
  Receipt Date: 20090210
  Transmission Date: 20090719
  Serious: Yes (Other)
  Sender: FDA-Public Use
  Company Number: None

PATIENT
  Age: 28 Year
  Sex: Female
  Weight: 52.1637 kg

DRUGS (2)
  1. CLARITHROMYCIN [Suspect]
     Indication: BRONCHITIS
     Dosage: 1000 MG 1 DAILY PO
     Route: 048
     Dates: start: 20090204, end: 20090205
  2. CLARITHROMYCIN [Suspect]
     Indication: SINUSITIS
     Dosage: 1000 MG 1 DAILY PO
     Route: 048
     Dates: start: 20090204, end: 20090205

REACTIONS (6)
  - DEPRESSION [None]
  - INSOMNIA [None]
  - MANIA [None]
  - PARANOIA [None]
  - PSYCHOTIC DISORDER [None]
  - SUICIDAL IDEATION [None]
